FAERS Safety Report 7940698-4 (Version None)
Quarter: 2011Q4

REPORT INFORMATION
  Report Type: 
  Country: None (occurrence: None)
  Receive Date: 20111128
  Receipt Date: 20111121
  Transmission Date: 20120403
  Serious: No
  Sender: FDA-Public Use
  Company Number: CN-JNJFOC-20111105774

PATIENT
  Age: 76 Year
  Sex: Male

DRUGS (2)
  1. DURAGESIC-100 [Suspect]
     Route: 062
  2. DURAGESIC-100 [Suspect]
     Indication: PAIN
     Route: 062
     Dates: start: 20111020

REACTIONS (6)
  - TREATMENT NONCOMPLIANCE [None]
  - CONSTIPATION [None]
  - DRUG EFFECT DECREASED [None]
  - DIZZINESS [None]
  - NAUSEA [None]
  - DECREASED APPETITE [None]
